FAERS Safety Report 7024597-0 (Version None)
Quarter: 2010Q4

REPORT INFORMATION
  Report Type: 
  Country: None (occurrence: None)
  Receive Date: 20101001
  Receipt Date: 20100920
  Transmission Date: 20110411
  Serious: Yes (Other)
  Sender: FDA-Public Use
  Company Number: SE-PFIZER INC-2010057661

PATIENT
  Age: 69 Year
  Sex: Female
  Weight: 110 kg

DRUGS (7)
  1. AROMASIN [Suspect]
     Indication: BREAST CANCER
     Dosage: 25 MG, 1X/DAY
     Route: 048
     Dates: start: 20100325
  2. ARIMIDEX [Suspect]
     Dosage: UNK
     Dates: start: 20091201, end: 20100325
  3. AMLODIPINE BESYLATE [Concomitant]
     Dosage: UNK
  4. METOPROLOL TARTRATE [Concomitant]
     Dosage: UNK
  5. ENALAPRIL [Concomitant]
     Dosage: UNK
  6. DIGOXIN [Concomitant]
     Dosage: UNK
  7. WARAN [Concomitant]
     Dosage: UNK

REACTIONS (14)
  - BALANCE DISORDER [None]
  - DRY MOUTH [None]
  - FIBROMYALGIA [None]
  - HOT FLUSH [None]
  - HYPERHIDROSIS [None]
  - INSOMNIA [None]
  - MOOD SWINGS [None]
  - MUSCULAR WEAKNESS [None]
  - MUSCULOSKELETAL DISCOMFORT [None]
  - MUSCULOSKELETAL STIFFNESS [None]
  - OSTEOARTHRITIS [None]
  - PRURITUS [None]
  - RASH [None]
  - VULVOVAGINAL DRYNESS [None]
